FAERS Safety Report 8308712-4 (Version None)
Quarter: 2012Q1

REPORT INFORMATION
  Report Type: 
  Country: None (occurrence: None)
  Receive Date: 20120327
  Receipt Date: 20110412
  Transmission Date: 20120608
  Serious: Yes (Other)
  Sender: FDA-Public Use
  Company Number: PHHY2011US12056

PATIENT
  Age: 40 Year
  Sex: Female
  Weight: 93.9 kg

DRUGS (9)
  1. ZOFRAN [Suspect]
     Dates: start: 20110112
  2. PROMETHAZINE [Concomitant]
  3. GLEEVEC [Suspect]
     Indication: CHRONIC MYELOID LEUKAEMIA
     Dosage: 400 MG, QD
     Dates: start: 20110202
  4. GLEEVEC [Suspect]
     Indication: CHRONIC MYELOID LEUKAEMIA
     Dosage: 400 MG, QD
     Dates: start: 20110110, end: 20110126
  5. BUMETANIDE [Concomitant]
  6. TRIAMCINOLONE [Concomitant]
  7. MEDROL [Concomitant]
  8. ZYRTEC [Concomitant]
  9. CORTICOSTEROIDS [Concomitant]

REACTIONS (17)
  - HEADACHE [None]
  - CONSTIPATION [None]
  - BLOOD PRESSURE INCREASED [None]
  - SWELLING FACE [None]
  - JAW DISORDER [None]
  - JOINT SWELLING [None]
  - RASH GENERALISED [None]
  - LEUKOPENIA [None]
  - NEPHROLITHIASIS [None]
  - SKIN EXFOLIATION [None]
  - DRUG ERUPTION [None]
  - EYE SWELLING [None]
  - PYREXIA [None]
  - FATIGUE [None]
  - EYELID OEDEMA [None]
  - WEIGHT DECREASED [None]
  - VOMITING [None]
